FAERS Safety Report 8824731 (Version 1)
Quarter: 2012Q4

REPORT INFORMATION
  Report Type: 
  Country: US (occurrence: US)
  Receive Date: 20121004
  Receipt Date: 20121004
  Transmission Date: 20130627
  Serious: Yes (Other)
  Sender: FDA-Public Use
  Company Number: US-PFIZER INC-2012242873

PATIENT
  Sex: Female

DRUGS (3)
  1. CELEBREX [Suspect]
  2. ACCUPRIL [Suspect]
     Dosage: UNK
  3. ZOLOFT [Suspect]

REACTIONS (1)
  - Back disorder [Unknown]
